FAERS Safety Report 21688830 (Version 1)
Quarter: 2022Q4

REPORT INFORMATION
  Report Type: Spontaneous
  Country: DE (occurrence: DE)
  Receive Date: 20221206
  Receipt Date: 20221206
  Transmission Date: 20230113
  Serious: Yes (Hospitalization, Other)
  Sender: FDA-Public Use
  Company Number: None

PATIENT
  Age: 61 Year
  Sex: Female
  Weight: 66 kg

DRUGS (1)
  1. HARVONI [Suspect]
     Active Substance: LEDIPASVIR\SOFOSBUVIR
     Indication: Hepatitis C
     Route: 065
     Dates: start: 201604, end: 201606

REACTIONS (15)
  - Dyspnoea exertional [Not Recovered/Not Resolved]
  - Atrioventricular block complete [Unknown]
  - Dyspepsia [Unknown]
  - Respiratory symptom [Not Recovered/Not Resolved]
  - Cough [Unknown]
  - Nausea [Unknown]
  - Weight bearing difficulty [Unknown]
  - Bundle branch block right [Unknown]
  - Sensation of foreign body [Unknown]
  - Diverticulum oesophageal [Unknown]
  - Duodenitis [Unknown]
  - Palpitations [Not Recovered/Not Resolved]
  - Dyspnoea [Unknown]
  - Metabolic disorder [Not Recovered/Not Resolved]
  - Chest discomfort [Unknown]

NARRATIVE: CASE EVENT DATE: 20160101
